FAERS Safety Report 7901112-8 (Version None)
Quarter: 2011Q4

REPORT INFORMATION
  Report Type: 
  Country: None (occurrence: None)
  Receive Date: 20111108
  Receipt Date: 20111104
  Transmission Date: 20120403
  Serious: Yes (Life-Threatening)
  Sender: FDA-Public Use
  Company Number: US-B.I. PHARMACEUTICALS,INC./RIDGEFIELD-2011-BP-25538BP

PATIENT
  Age: 60 Year
  Sex: Male

DRUGS (1)
  1. TRADJENTA [Suspect]

REACTIONS (1)
  - STEVENS-JOHNSON SYNDROME [None]
